FAERS Safety Report 4450832-9 (Version None)
Quarter: 2004Q3

REPORT INFORMATION
  Report Type: 
  Country: None (occurrence: None)
  Receive Date: 20040916
  Receipt Date: 20011002
  Transmission Date: 20050211
  Serious: Yes (Other)
  Sender: FDA-Public Use
  Company Number: US-BRISTOL-MYERS SQUIBB COMPANY-11039575

PATIENT
  Sex: Female

DRUGS (8)
  1. STADOL [Suspect]
     Route: 045
  2. STADOL [Suspect]
     Dosage: IV AND IM
     Route: 042
  3. PROMETHAZINE [Concomitant]
  4. HYDROCODONE + ACETAMINOPHEN [Concomitant]
  5. OXYCODONE HCL + ACETAMINOPHEN [Concomitant]
  6. CARISOPRODOL [Concomitant]
  7. PROPOXYPHENE NAPSYLATE [Concomitant]
  8. RANITIDINE [Concomitant]

REACTIONS (1)
  - DEPENDENCE [None]
